FAERS Safety Report 4764681-5 (Version None)
Quarter: 2005Q3

REPORT INFORMATION
  Report Type: 
  Country: None (occurrence: None)
  Receive Date: 20050909
  Receipt Date: 20050901
  Transmission Date: 20060218
  Serious: Yes (Disabling)
  Sender: FDA-Public Use
  Company Number: GB-MERCK-0509GBR00011

PATIENT
  Age: 66 Year
  Sex: Male
  Weight: 82 kg

DRUGS (3)
  1. ZOCOR [Suspect]
     Indication: HYPERLIPIDAEMIA
     Route: 048
     Dates: start: 20050411, end: 20050506
  2. CARBOMER [Concomitant]
     Route: 065
     Dates: start: 20020222
  3. DICLOFENAC SODIUM AND MISOPROSTOL [Concomitant]
     Route: 065
     Dates: start: 19950522

REACTIONS (1)
  - MYOSITIS [None]
